FAERS Safety Report 6330532-0 (Version None)
Quarter: 2009Q3

REPORT INFORMATION
  Report Type: 
  Country: None (occurrence: None)
  Receive Date: 20090827
  Receipt Date: 20090403
  Transmission Date: 20100115
  Serious: No
  Sender: FDA-Public Use
  Company Number: A0778007A

PATIENT
  Age: 65 Year
  Sex: Female

DRUGS (4)
  1. ZOVIRAX [Suspect]
     Dates: start: 20090401
  2. VALTREX [Concomitant]
  3. UNKNOWN [Concomitant]
  4. CEPHALEXIN [Concomitant]

REACTIONS (1)
  - BURNING SENSATION [None]
